FAERS Safety Report 9204602 (Version 1)
Quarter: 2013Q2

REPORT INFORMATION
  Report Type: Spontaneous
  Country: US (occurrence: None)
  Receive Date: 20130401
  Receipt Date: 20130401
  Transmission Date: 20140414
  Serious: No
  Sender: FDA-Public Use
  Company Number: None

PATIENT
  Age: 20 Year
  Sex: Female
  Weight: 92.99 kg

DRUGS (1)
  1. MIRENA [Suspect]

REACTIONS (4)
  - Abdominal pain [None]
  - Haemorrhage [None]
  - Ovarian cyst [None]
  - Hysterectomy [None]
